FAERS Safety Report 9650812 (Version 1)
Quarter: 2013Q4

REPORT INFORMATION
  Report Type: Spontaneous
  Country: CA (occurrence: CA)
  Receive Date: 20131029
  Receipt Date: 20131029
  Transmission Date: 20140711
  Serious: Yes (Other)
  Sender: FDA-Public Use
  Company Number: CA-AMGEN-CANSP2013075653

PATIENT
  Sex: Female

DRUGS (1)
  1. ENBREL [Suspect]
     Indication: RHEUMATOID ARTHRITIS
     Dosage: 25 MG, 2 TIMES/WK
     Route: 065
     Dates: start: 20010504

REACTIONS (1)
  - Neoplasm malignant [Unknown]
